FAERS Safety Report 8456862-4 (Version None)
Quarter: 2012Q2

REPORT INFORMATION
  Report Type: 
  Country: None (occurrence: None)
  Receive Date: 20120621
  Receipt Date: 20120613
  Transmission Date: 20120825
  Serious: Yes (Hospitalization)
  Sender: FDA-Public Use
  Company Number: SI-B.I. PHARMACEUTICALS,INC./RIDGEFIELD-2012-AP-00494AP

PATIENT
  Sex: Female

DRUGS (5)
  1. PRADAXA [Suspect]
     Indication: ATRIAL FIBRILLATION
     Dosage: 300 MG
     Route: 048
     Dates: start: 20120418, end: 20120505
  2. KAMIREN [Concomitant]
  3. LANITOP [Concomitant]
     Dates: start: 20120415
  4. CONCOR [Concomitant]
     Dates: start: 20110101
  5. ATACAND [Concomitant]
     Dosage: 32 MG

REACTIONS (8)
  - FATIGUE [None]
  - ALANINE AMINOTRANSFERASE INCREASED [None]
  - ABDOMINAL PAIN [None]
  - GAMMA-GLUTAMYLTRANSFERASE INCREASED [None]
  - DIARRHOEA [None]
  - EYE OEDEMA [None]
  - DYSPNOEA [None]
  - OEDEMA PERIPHERAL [None]
